FAERS Safety Report 8585629-1 (Version None)
Quarter: 2012Q3

REPORT INFORMATION
  Report Type: 
  Country: None (occurrence: None)
  Receive Date: 20120810
  Receipt Date: 20120808
  Transmission Date: 20120928
  Serious: Yes (Hospitalization, Other)
  Sender: FDA-Public Use
  Company Number: PHHY2012CA051771

PATIENT
  Sex: Male

DRUGS (2)
  1. SANDOSTATIN LAR [Suspect]
     Indication: HAEMORRHAGE
     Dosage: 30 MG, ONCE A MONTH
     Route: 030
     Dates: start: 20120620
  2. SANDOSTATIN [Suspect]
     Indication: HAEMORRHAGE
     Dosage: 150 UG, TID
     Route: 058

REACTIONS (9)
  - HYPOTENSION [None]
  - SEPTIC SHOCK [None]
  - MALAISE [None]
  - HAEMORRHAGE [None]
  - POSTOPERATIVE WOUND INFECTION [None]
  - BONE DISORDER [None]
  - TACHYCARDIA [None]
  - PLEURAL EFFUSION [None]
  - ASTHENIA [None]
